FAERS Safety Report 9537744 (Version 1)
Quarter: 2013Q3

REPORT INFORMATION
  Report Type: Spontaneous
  Country: US (occurrence: US)
  Receive Date: 20130919
  Receipt Date: 20130919
  Transmission Date: 20140515
  Serious: Yes (Other)
  Sender: FDA-Public Use
  Company Number: US-BAYER-2013-112822

PATIENT
  Sex: Male

DRUGS (1)
  1. ALEVE CAPLET [Suspect]
     Dosage: UNK UNK, QD

REACTIONS (3)
  - Drug dependence [None]
  - Incorrect drug administration duration [None]
  - Therapeutic response unexpected [None]
